FAERS Safety Report 22140869 (Version 1)
Quarter: 2023Q1

REPORT INFORMATION
  Report Type: Other
  Country: CA (occurrence: CA)
  Receive Date: 20230327
  Receipt Date: 20230327
  Transmission Date: 20230417
  Serious: Yes (Other)
  Sender: FDA-Public Use
  Company Number: CA-APOTEX-2023AP005631

PATIENT
  Age: 76 Year
  Sex: Female

DRUGS (1)
  1. LENALIDOMIDE [Suspect]
     Active Substance: LENALIDOMIDE
     Indication: Product used for unknown indication
     Dosage: UNK
     Route: 065

REACTIONS (10)
  - Faeces discoloured [Unknown]
  - Head injury [Unknown]
  - Syncope [Unknown]
  - Somnolence [Unknown]
  - Diarrhoea [Unknown]
  - Epistaxis [Unknown]
  - Fall [Unknown]
  - Nausea [Unknown]
  - Confusional state [Unknown]
  - Asthenia [Unknown]
